FAERS Safety Report 7582941-X (Version None)
Quarter: 2011Q2

REPORT INFORMATION
  Report Type: 
  Country: None (occurrence: None)
  Receive Date: 20110630
  Receipt Date: 20091122
  Transmission Date: 20111010
  Serious: Yes (Other)
  Sender: FDA-Public Use
  Company Number: US-BAYER-200940689NA

PATIENT
  Age: 71 Year
  Sex: Female
  Weight: 88 kg

DRUGS (21)
  1. VERSED [Concomitant]
     Dosage: 2 MG, ONCE
     Route: 048
     Dates: start: 20041228, end: 20041228
  2. PROTAMINE SULFATE [Concomitant]
     Dosage: 350 MG, ONCE, TOTAL DOSE
     Route: 042
     Dates: start: 20041228, end: 20041228
  3. PHENYLEPHRINE HCL [Concomitant]
     Dosage: 100
     Route: 042
     Dates: start: 20041228, end: 20041228
  4. FENTANYL [Concomitant]
     Dosage: 100MCG ONCE
     Route: 048
     Dates: start: 20041228, end: 20041228
  5. VALIUM [Concomitant]
     Dosage: 5 MG, ONCE
     Route: 048
     Dates: start: 20041228, end: 20041228
  6. FENTANYL [Concomitant]
     Dosage: 1000MCG TOTAL
     Route: 042
     Dates: start: 20041228, end: 20041228
  7. LASIX [Concomitant]
     Indication: POLYURIA
     Dosage: UNK
     Dates: end: 20041229
  8. ACETYLSALICYLIC ACID SRT [Concomitant]
     Dosage: 325 MG, ONCE
     Route: 048
     Dates: start: 20041228, end: 20041228
  9. VERSED [Concomitant]
     Dosage: 10 MG, ONCE, TOTAL
     Route: 042
     Dates: start: 20041228, end: 20041228
  10. HYDROCHLOROTHIAZIDE [Concomitant]
     Dosage: 25 MG, QD, LONG TERM
     Route: 048
     Dates: end: 20041227
  11. ATENOLOL [Concomitant]
     Dosage: 50 MG, QD
     Route: 048
     Dates: end: 20041228
  12. HEPARIN [Concomitant]
     Dosage: 10000 U, UNK, PRIME
     Route: 042
     Dates: start: 20041228, end: 20041228
  13. PACKED RED BLOOD CELLS [Concomitant]
     Dosage: 4 U, UNK
     Route: 042
     Dates: start: 20041228
  14. TRASYLOL [Suspect]
     Indication: PRODUCT USED FOR UNKNOWN INDICATION
     Dosage: 200 ML, ONCE, INFUSION
     Route: 042
     Dates: start: 20041228, end: 20041228
  15. TRASYLOL [Suspect]
     Dosage: 50 ML/HR INFUSION
     Route: 042
     Dates: start: 20041228, end: 20041228
  16. ACETYLSALICYLIC ACID SRT [Concomitant]
     Dosage: DAILY
     Route: 048
     Dates: end: 20041227
  17. PLAVIX [Concomitant]
     Dosage: 300 MG, ONCE
     Route: 048
     Dates: start: 20041228, end: 20041228
  18. ENALAPRIL MALEATE [Concomitant]
     Dosage: UNK
     Dates: end: 20050629
  19. TRASYLOL [Suspect]
     Dosage: 400ML X2
     Dates: start: 20041228, end: 20041228
  20. ACETAMINOPHEN [Concomitant]
     Dosage: FOUR TABLETS TWO TIMES DAILY
     Route: 048
     Dates: end: 20041227
  21. CEFUROXIME [Concomitant]
     Dosage: 1.5 G, ONCE
     Route: 042
     Dates: start: 20041228, end: 20041228

REACTIONS (11)
  - STRESS [None]
  - ANXIETY [None]
  - INJURY [None]
  - RENAL FAILURE [None]
  - ANHEDONIA [None]
  - EMOTIONAL DISTRESS [None]
  - PAIN [None]
  - RENAL IMPAIRMENT [None]
  - UNEVALUABLE EVENT [None]
  - FEAR [None]
  - RENAL INJURY [None]
